FAERS Safety Report 5467551-2 (Version None)
Quarter: 2007Q3

REPORT INFORMATION
  Report Type: 
  Country: None (occurrence: None)
  Receive Date: 20070925
  Receipt Date: 20070921
  Transmission Date: 20080115
  Serious: No
  Sender: FDA-Public Use
  Company Number: US-BOEHRINGER INGELHEIM PHARMACEUTICALS, INC.-2006-BP-06069BP

PATIENT
  Sex: Male

DRUGS (28)
  1. MIRAPEX [Suspect]
     Indication: PARKINSON'S DISEASE
     Route: 048
     Dates: start: 20030723, end: 20050801
  2. SINEMET CR [Concomitant]
     Indication: PARKINSON'S DISEASE
     Dates: start: 20030701
  3. REQUIP [Concomitant]
     Indication: PARKINSON'S DISEASE
     Dates: start: 20030701
  4. STALEVO 100 [Concomitant]
     Indication: PARKINSON'S DISEASE
     Dates: start: 20050801, end: 20051229
  5. SYMMETREL [Concomitant]
     Indication: PARKINSON'S DISEASE
     Dates: start: 20051229
  6. INDERAL LA [Concomitant]
     Indication: PARKINSON'S DISEASE
     Dates: start: 20060201
  7. RELAFEN [Concomitant]
     Indication: JUVENILE ARTHRITIS
  8. KLONOPIN [Concomitant]
     Indication: INSOMNIA
     Dates: start: 20030918, end: 20040219
  9. KLONOPIN [Concomitant]
     Indication: ANXIETY
     Dates: start: 20040101
  10. PARCOPA [Concomitant]
     Indication: PARKINSON'S DISEASE
     Dates: start: 20050119
  11. MINOCYCLINE HCL [Concomitant]
  12. SULFAMETHOXAZOLE [Concomitant]
  13. MUPIROCIN [Concomitant]
  14. OXYCODONE AND ASPIRIN [Concomitant]
  15. ZITHROMAX [Concomitant]
  16. P-EPHIDRINE-GUAIFEN LA [Concomitant]
  17. PRIMIDONE [Concomitant]
  18. AMANTADINE HCL [Concomitant]
  19. SYMAX SR [Concomitant]
     Indication: DIARRHOEA
     Dates: start: 20061113
  20. ASCORBIC ACID [Concomitant]
     Dates: start: 20031208
  21. VITAMIN E [Concomitant]
     Dates: start: 20031208
  22. CELEBREX [Concomitant]
     Indication: JUVENILE ARTHRITIS
     Dates: start: 20061101
  23. NEXIUM [Concomitant]
     Indication: GASTRITIS
     Dates: start: 20061101
  24. CARBIDOPA AND LEVODOPA [Concomitant]
  25. ZELEPAR [Concomitant]
     Dates: start: 20061117
  26. PAN MIST LA [Concomitant]
     Indication: SINUSITIS
     Dates: start: 20050907
  27. ZANTAC OTC [Concomitant]
     Indication: DYSPEPSIA
  28. AZILECT [Concomitant]
     Dates: end: 20050901

REACTIONS (17)
  - ANXIETY [None]
  - BLADDER DISORDER [None]
  - BLEPHAROSPASM [None]
  - DEPRESSED MOOD [None]
  - DEPRESSION [None]
  - DIARRHOEA [None]
  - DYSPEPSIA [None]
  - EMOTIONAL DISTRESS [None]
  - ESSENTIAL TREMOR [None]
  - INSOMNIA [None]
  - INTESTINAL FUNCTIONAL DISORDER [None]
  - NAUSEA [None]
  - PATHOLOGICAL GAMBLING [None]
  - RESTLESSNESS [None]
  - SOMNOLENCE [None]
  - STAPHYLOCOCCAL INFECTION [None]
  - STOMACH DISCOMFORT [None]
